FAERS Safety Report 5247590-7 (Version None)
Quarter: 2007Q1

REPORT INFORMATION
  Report Type: 
  Country: None (occurrence: None)
  Receive Date: 20070227
  Receipt Date: 20070213
  Transmission Date: 20070707
  Serious: Yes (Hospitalization, Other)
  Sender: FDA-Public Use
  Company Number: US-AMGEN-US211293

PATIENT
  Sex: Female

DRUGS (1)
  1. ENBREL [Suspect]
     Indication: RHEUMATOID ARTHRITIS
     Route: 058
     Dates: start: 20030301

REACTIONS (7)
  - CATARACT OPERATION [None]
  - CERVICAL VERTEBRAL FRACTURE [None]
  - FALL [None]
  - GASTROINTESTINAL INFECTION [None]
  - KNEE ARTHROPLASTY [None]
  - LOWER LIMB FRACTURE [None]
  - SPINAL FRACTURE [None]
